FAERS Safety Report 15898597 (Version 2)
Quarter: 2020Q4

REPORT INFORMATION
  Report Type: Spontaneous
  Country: US (occurrence: US)
  Receive Date: 20190201
  Receipt Date: 20201112
  Transmission Date: 20210113
  Serious: Yes (Disabling)
  Sender: FDA-Public Use
  Company Number: US-TEVA-2019-US-1005566

PATIENT
  Age: 74 Year
  Sex: Female

DRUGS (2)
  1. DOCETAXEL ACCORD [Suspect]
     Active Substance: DOCETAXEL
     Indication: BREAST CANCER FEMALE
     Dosage: STRENGTH: 20 MG
     Route: 065
     Dates: start: 20141010, end: 20141010
  2. DOCETAXEL SAGENT [Suspect]
     Active Substance: DOCETAXEL
     Indication: BREAST CANCER FEMALE
     Dosage: STRENGTH: 140 MG AND 20 MG, ADMINISTERED ON 07-AUG-2014, 29-AUG-2014, 18-SEP-2014 AND 10-OCT-2014. E
     Route: 065

REACTIONS (1)
  - Alopecia [Unknown]
